FAERS Safety Report 18375852 (Version 1)
Quarter: 2020Q4

REPORT INFORMATION
  Report Type: Spontaneous
  Country: US (occurrence: US)
  Receive Date: 20201009
  Receipt Date: 20201009
  Transmission Date: 20210114
  Serious: Yes (Other)
  Sender: FDA-Public Use
  Company Number: None

PATIENT
  Age: 42 Year
  Sex: Female
  Weight: 110.25 kg

DRUGS (1)
  1. CARBOPLATIN. [Suspect]
     Active Substance: CARBOPLATIN
     Indication: UTERINE CANCER
     Route: 042

REACTIONS (11)
  - Muscle spasms [None]
  - Rash [None]
  - Abdominal pain [None]
  - Skin irritation [None]
  - Dysuria [None]
  - Alopecia [None]
  - Blister [None]
  - Haematochezia [None]
  - Faeces discoloured [None]
  - Blood urine present [None]
  - Urine odour abnormal [None]

NARRATIVE: CASE EVENT DATE: 20200825
